FAERS Safety Report 20746871 (Version 4)
Quarter: 2022Q3

REPORT INFORMATION
  Report Type: Spontaneous
  Country: US (occurrence: US)
  Receive Date: 20220425
  Receipt Date: 20220713
  Transmission Date: 20221026
  Serious: Yes (Other)
  Sender: FDA-Public Use
  Company Number: US-PFIZER INC-202200585291

PATIENT
  Age: 59 Year
  Sex: Female

DRUGS (25)
  1. IBRANCE [Suspect]
     Active Substance: PALBOCICLIB
     Dosage: 125 MG, CYCLIC (21 DAYS ON, 7 DAYS OFF)
     Dates: start: 20220315
  2. IBRANCE [Suspect]
     Active Substance: PALBOCICLIB
     Dosage: 125 MG, DAILY
     Route: 048
     Dates: start: 20220315
  3. IBRANCE [Suspect]
     Active Substance: PALBOCICLIB
     Dosage: 125 MG, 1X/DAY (TAKE 1 CAPSULE (125 MG) BY MOUTH ONCE DAILY)
     Route: 048
     Dates: start: 20220225
  4. CEFUROXIME [Concomitant]
     Active Substance: CEFUROXIME
     Dosage: UNK
  5. CELEBREX [Concomitant]
     Active Substance: CELECOXIB
     Dosage: UNK
  6. AMCAL FISH OIL [Concomitant]
     Dosage: UNK
  7. GLUCOSAMINE + CHONDORITIN [Concomitant]
     Dosage: UNK
  8. HYDROCHLOROTHIAZIDE\TRIAMTERENE [Concomitant]
     Active Substance: HYDROCHLOROTHIAZIDE\TRIAMTERENE
     Dosage: UNK
  9. LETROZOLE [Concomitant]
     Active Substance: LETROZOLE
     Dosage: UNK
  10. LYRICA [Concomitant]
     Active Substance: PREGABALIN
     Dosage: UNK
  11. MAGNESIUM [Concomitant]
     Active Substance: MAGNESIUM
     Dosage: UNK
  12. METFORMIN [Concomitant]
     Active Substance: METFORMIN HYDROCHLORIDE
     Dosage: UNK
  13. PROBIOTICS NOS [Concomitant]
     Active Substance: PROBIOTICS NOS
     Dosage: UNK
  14. OMEPRAZOLE [Concomitant]
     Active Substance: OMEPRAZOLE
     Dosage: UNK
  15. ROSUVASTATIN [Concomitant]
     Active Substance: ROSUVASTATIN
     Dosage: UNK
  16. HERBALS\TURMERIC [Concomitant]
     Active Substance: HERBALS\TURMERIC
     Dosage: UNK
  17. LUTEIN [Concomitant]
     Active Substance: LUTEIN
     Dosage: UNK
  18. ASCORBIC ACID [Concomitant]
     Active Substance: ASCORBIC ACID
     Dosage: UNK
  19. ZINC [Concomitant]
     Active Substance: ZINC
     Dosage: UNK
  20. ZOFRAN [Concomitant]
     Active Substance: ONDANSETRON HYDROCHLORIDE
     Dosage: UNK
  21. VITAMIN D3 [Concomitant]
     Active Substance: CHOLECALCIFEROL
     Dosage: UNK
  22. CHROMIUM PICOLINATE [Concomitant]
     Active Substance: CHROMIUM PICOLINATE
     Dosage: UNK
  23. VITAMIN B12 [Concomitant]
     Active Substance: CYANOCOBALAMIN
     Dosage: UNK
  24. PREGABALIN [Concomitant]
     Active Substance: PREGABALIN
     Dosage: UNK
  25. CORTISONE [Concomitant]
     Active Substance: CORTISONE
     Dosage: UNK

REACTIONS (16)
  - Nasal inflammation [Recovering/Resolving]
  - Sinusitis [Recovering/Resolving]
  - Ear disorder [Recovering/Resolving]
  - Rhinorrhoea [Recovering/Resolving]
  - Epistaxis [Recovering/Resolving]
  - Oral pain [Recovering/Resolving]
  - Gingival pain [Recovering/Resolving]
  - Oral herpes [Recovering/Resolving]
  - Alopecia [Not Recovered/Not Resolved]
  - Respiratory tract infection [Recovered/Resolved]
  - Alopecia [Unknown]
  - Fungal infection [Unknown]
  - Aphasia [Not Recovered/Not Resolved]
  - White blood cell count abnormal [Recovering/Resolving]
  - Urinary tract infection [Unknown]
  - Feeling abnormal [Unknown]

NARRATIVE: CASE EVENT DATE: 20220101
